FAERS Safety Report 7635521-1 (Version None)
Quarter: 2011Q3

REPORT INFORMATION
  Report Type: 
  Country: None (occurrence: None)
  Receive Date: 20110726
  Receipt Date: 20110719
  Transmission Date: 20111222
  Serious: No
  Sender: FDA-Public Use
  Company Number: US-BAYER-2011-062959

PATIENT
  Sex: Female

DRUGS (1)
  1. MIRENA [Suspect]
     Indication: CONTRACEPTION
     Dosage: UNK
     Dates: start: 20101001, end: 20110713

REACTIONS (4)
  - HOT FLUSH [None]
  - BREAST PAIN [None]
  - HYPERTENSION [None]
  - PAIN IN EXTREMITY [None]
